FAERS Safety Report 24783949 (Version 1)
Quarter: 2024Q4

REPORT INFORMATION
  Report Type: Spontaneous
  Country: PL (occurrence: PL)
  Receive Date: 20241227
  Receipt Date: 20241227
  Transmission Date: 20250115
  Serious: Yes (Hospitalization, Other)
  Sender: OTSUKA
  Company Number: PL-OTSUKA-2024_034294

PATIENT
  Sex: Male

DRUGS (2)
  1. TOLVAPTAN [Suspect]
     Active Substance: TOLVAPTAN
     Indication: Congenital cystic kidney disease
     Dosage: 60 MG
     Route: 048
  2. TOLVAPTAN [Suspect]
     Active Substance: TOLVAPTAN
     Dosage: 30 MG
     Route: 048

REACTIONS (3)
  - Hepatic failure [Not Recovered/Not Resolved]
  - Pancreatic failure [Not Recovered/Not Resolved]
  - Neurological symptom [Not Recovered/Not Resolved]
